FAERS Safety Report 7344528-3 (Version None)
Quarter: 2011Q1

REPORT INFORMATION
  Report Type: 
  Country: None (occurrence: None)
  Receive Date: 20110307
  Receipt Date: 20110307
  Transmission Date: 20110831
  Serious: Yes (Life-Threatening, Other)
  Sender: FDA-Public Use
  Company Number: None

PATIENT
  Sex: Female
  Weight: 109.7705 kg

DRUGS (1)
  1. RELPAX [Suspect]
     Indication: MIGRAINE
     Dosage: 1 1 PO
     Route: 048
     Dates: start: 20110224, end: 20110224

REACTIONS (10)
  - DIZZINESS [None]
  - MUSCULAR WEAKNESS [None]
  - TREMOR [None]
  - CHEST PAIN [None]
  - CONVULSION [None]
  - DYSARTHRIA [None]
  - INCOHERENT [None]
  - SYNCOPE [None]
  - DYSPNOEA [None]
  - ORAL DISCOMFORT [None]
